FAERS Safety Report 17025899 (Version 1)
Quarter: 2019Q4

REPORT INFORMATION
  Report Type: Spontaneous
  Country: AF (occurrence: AF)
  Receive Date: 20191112
  Receipt Date: 20191112
  Transmission Date: 20200122
  Serious: Yes (Hospitalization)
  Sender: FDA-Public Use
  Company Number: None

PATIENT
  Age: 92 Year
  Sex: Male
  Weight: 70.2 kg

DRUGS (12)
  1. ASPIRIN. [Concomitant]
     Active Substance: ASPIRIN
  2. LISINOPRIL. [Concomitant]
     Active Substance: LISINOPRIL
  3. FAMOTIDINE. [Concomitant]
     Active Substance: FAMOTIDINE
  4. LEVOFLOXACIN. [Concomitant]
     Active Substance: LEVOFLOXACIN
  5. ABIRATERONE. [Suspect]
     Active Substance: ABIRATERONE ACETATE
     Indication: PROSTATE CANCER
     Route: 048
     Dates: start: 20191107
  6. VITAMIN D3 [Concomitant]
     Active Substance: CHOLECALCIFEROL
  7. LUMIGAN [Concomitant]
     Active Substance: BIMATOPROST
  8. LUPRON [Concomitant]
     Active Substance: LEUPROLIDE ACETATE
  9. POLYETHYLENE GLYCOL [Concomitant]
     Active Substance: POLYETHYLENE GLYCOLS
  10. TORSEMIDE. [Concomitant]
     Active Substance: TORSEMIDE
  11. BICALUTAMIDE. [Concomitant]
     Active Substance: BICALUTAMIDE
  12. MULTIVITAMIN [Concomitant]
     Active Substance: VITAMINS

REACTIONS (1)
  - Hospitalisation [None]

NARRATIVE: CASE EVENT DATE: 20191111
